FAERS Safety Report 19186027 (Version 2)
Quarter: 2021Q3

REPORT INFORMATION
  Report Type: Spontaneous
  Country: SE (occurrence: SE)
  Receive Date: 20210427
  Receipt Date: 20210723
  Transmission Date: 20211014
  Serious: Yes (Hospitalization, Other)
  Sender: FDA-Public Use
  Company Number: SE-SEAGEN-2021SGN02404

PATIENT
  Age: 44 Year
  Sex: Male

DRUGS (1)
  1. ADCETRIS [Suspect]
     Active Substance: BRENTUXIMAB VEDOTIN
     Indication: HODGKIN^S DISEASE
     Dosage: 50 MILLIGRAM
     Route: 042
     Dates: start: 20190123, end: 20191104

REACTIONS (1)
  - Polyneuropathy [Recovered/Resolved with Sequelae]

NARRATIVE: CASE EVENT DATE: 201910
